FAERS Safety Report 8354900-0 (Version None)
Quarter: 2012Q2

REPORT INFORMATION
  Report Type: 
  Country: None (occurrence: None)
  Receive Date: 20120511
  Receipt Date: 20120501
  Transmission Date: 20120825
  Serious: Yes (Other)
  Sender: FDA-Public Use
  Company Number: US-JNJFOC-20120506780

PATIENT
  Sex: Female

DRUGS (6)
  1. SEROQUEL [Concomitant]
     Indication: BIPOLAR DISORDER
     Route: 048
     Dates: end: 20120201
  2. KLONOPIN [Concomitant]
     Indication: BIPOLAR DISORDER
     Route: 048
  3. INVEGA SUSTENNA [Suspect]
     Indication: BIPOLAR DISORDER
     Route: 030
     Dates: start: 20120202, end: 20120202
  4. TEGRETOL [Concomitant]
     Route: 048
  5. TRAZODONE HCL [Concomitant]
     Indication: BIPOLAR DISORDER
     Route: 048
  6. GEODON [Concomitant]
     Indication: BIPOLAR DISORDER
     Route: 048
     Dates: end: 20120201

REACTIONS (3)
  - DYSPNOEA [None]
  - PYREXIA [None]
  - SWOLLEN TONGUE [None]
